FAERS Safety Report 9580927 (Version 1)
Quarter: 2013Q4

REPORT INFORMATION
  Report Type: Spontaneous
  Country: US (occurrence: US)
  Receive Date: 20131002
  Receipt Date: 20131002
  Transmission Date: 20140711
  Serious: No
  Sender: FDA-Public Use
  Company Number: US-PFIZER INC-2013278311

PATIENT
  Age: 75 Year
  Sex: Female
  Weight: 68.03 kg

DRUGS (6)
  1. COLESTIPOL HCL [Suspect]
     Indication: DIARRHOEA
     Dosage: 1 G, 2X/DAY
     Dates: start: 20130925, end: 20130926
  2. LIPITOR [Concomitant]
     Indication: BLOOD CHOLESTEROL ABNORMAL
     Dosage: 10 MG, DAILY
  3. REGLAN [Concomitant]
     Indication: GASTROOESOPHAGEAL REFLUX DISEASE
     Dosage: 10 MG, UNK
  4. REGLAN [Concomitant]
     Indication: HIATUS HERNIA
  5. PROTONIX [Concomitant]
     Indication: GASTROOESOPHAGEAL REFLUX DISEASE
     Dosage: 40 MG, DAILY
  6. ZANTAC [Concomitant]
     Indication: GASTROOESOPHAGEAL REFLUX DISEASE
     Dosage: 150 MG, DAILY

REACTIONS (3)
  - Product size issue [Unknown]
  - Wrong technique in drug usage process [Unknown]
  - Dysphagia [Unknown]
